FAERS Safety Report 24110246 (Version 1)
Quarter: 2024Q3

REPORT INFORMATION
  Report Type: Spontaneous
  Country: US (occurrence: US)
  Receive Date: 20240718
  Receipt Date: 20240718
  Transmission Date: 20241016
  Serious: Yes (Other)
  Sender: TEVA
  Company Number: US-TEVA-VS-3219982

PATIENT
  Sex: Female

DRUGS (9)
  1. COPAXONE [Suspect]
     Active Substance: GLATIRAMER ACETATE
     Indication: Product used for unknown indication
     Route: 065
  2. DICLOFENAC [Concomitant]
     Active Substance: DICLOFENAC
  3. REBIF [Concomitant]
     Active Substance: INTERFERON BETA-1A
  4. GABAPENTIN [Concomitant]
     Active Substance: GABAPENTIN
  5. OMEGA-3 FATTY ACIDS [Concomitant]
     Active Substance: OMEGA-3 FATTY ACIDS
  6. MAGNESIUM [Concomitant]
     Active Substance: MAGNESIUM
  7. PROGESTERONE [Concomitant]
     Active Substance: PROGESTERONE
  8. VITAMIN D3 [Concomitant]
     Active Substance: CHOLECALCIFEROL
  9. DEXTROAMPHETAMINE [Concomitant]
     Active Substance: DEXTROAMPHETAMINE

REACTIONS (4)
  - Disease recurrence [Unknown]
  - Fatigue [Unknown]
  - Hypoaesthesia [Unknown]
  - Magnetic resonance imaging abnormal [Unknown]
